FAERS Safety Report 22590708 (Version 1)
Quarter: 2023Q2

REPORT INFORMATION
  Report Type: Spontaneous
  Country: US (occurrence: None)
  Receive Date: 20230610
  Receipt Date: 20230610
  Transmission Date: 20230721
  Serious: Yes (Hospitalization)
  Sender: FDA-Public Use
  Company Number: None

PATIENT
  Age: 19 Year
  Sex: Male
  Weight: 101.25 kg

DRUGS (3)
  1. .DELTA.9-TETRAHYDROCANNABINOL\HERBALS [Suspect]
     Active Substance: .DELTA.9-TETRAHYDROCANNABINOL\HERBALS
     Indication: Substance use
     Dosage: OTHER QUANTITY : 2 GUMMIES;?FREQUENCY : AS NEEDED;?
     Route: 048
     Dates: start: 20230606, end: 20230607
  2. .DELTA.9-TETRAHYDROCANNABINOL\HERBALS [Suspect]
     Active Substance: .DELTA.9-TETRAHYDROCANNABINOL\HERBALS
     Indication: Feeling of relaxation
  3. VITAMINS [Concomitant]
     Active Substance: VITAMINS

REACTIONS (8)
  - Euphoric mood [None]
  - Incoherent [None]
  - Psychotic disorder [None]
  - Anger [None]
  - Aggression [None]
  - Mania [None]
  - Slow speech [None]
  - Blood glucose increased [None]

NARRATIVE: CASE EVENT DATE: 20230606
